FAERS Safety Report 5534615-4 (Version None)
Quarter: 2007Q4

REPORT INFORMATION
  Report Type: 
  Country: None (occurrence: None)
  Receive Date: 20071205
  Receipt Date: 20071126
  Transmission Date: 20080405
  Serious: Yes (Hospitalization)
  Sender: FDA-Public Use
  Company Number: JP-JNJFOC-20071101582

PATIENT
  Sex: Male

DRUGS (9)
  1. DORIBAX [Suspect]
     Indication: CHOLECYSTITIS
     Route: 041
  2. DIGOSIN [Concomitant]
     Indication: ATRIAL FIBRILLATION
     Route: 042
  3. NOVO HEPARIN [Concomitant]
     Route: 042
  4. MINOMYCIN [Concomitant]
     Indication: PYREXIA
     Route: 042
  5. TEGRETOL [Concomitant]
     Indication: EPILEPSY
     Route: 048
  6. LITHIUM CARBONATE [Concomitant]
     Indication: BIPOLAR DISORDER
     Route: 048
  7. HYDANTOL D [Concomitant]
     Indication: EPILEPSY
     Route: 048
  8. NITRAZEPAM [Concomitant]
     Indication: BIPOLAR DISORDER
     Route: 048
  9. CLARITHROMYCIN [Concomitant]
     Indication: PYREXIA
     Route: 065

REACTIONS (1)
  - INTERSTITIAL LUNG DISEASE [None]
